FAERS Safety Report 15670884 (Version 1)
Quarter: 2018Q4

REPORT INFORMATION
  Report Type: Spontaneous
  Country: JP (occurrence: JP)
  Receive Date: 20181129
  Receipt Date: 20181129
  Transmission Date: 20190205
  Serious: No
  Sender: FDA-Public Use
  Company Number: JP-NODEN PHARMA DAC-NOD-2017-000129

PATIENT
  Sex: Male

DRUGS (2)
  1. RASILEZ [Suspect]
     Active Substance: ALISKIREN
     Indication: HYPERTENSION
     Dosage: UNK
     Route: 065
  2. AZILVA [Suspect]
     Active Substance: AZILSARTAN KAMEDOXOMIL
     Indication: HYPERTENSION
     Dosage: UNK
     Route: 065

REACTIONS (2)
  - Product dispensing error [Unknown]
  - Product prescribing error [Unknown]

NARRATIVE: CASE EVENT DATE: 201710
